FAERS Safety Report 4637172-X (Version None)
Quarter: 2005Q2

REPORT INFORMATION
  Report Type: 
  Country: None (occurrence: None)
  Receive Date: 20050325
  Receipt Date: 20041228
  Transmission Date: 20051028
  Serious: No
  Sender: FDA-Public Use
  Company Number: USA040978604

PATIENT
  Age: 80 Year
  Sex: Female

DRUGS (5)
  1. FORTEO [Suspect]
     Indication: OSTEOPOROSIS
     Dosage: 20 UG DAY
     Dates: start: 20040904
  2. CALCIUM GLUCONATE [Concomitant]
  3. SYNTHROID [Concomitant]
  4. VITAMIN B-12 [Concomitant]
  5. MOBIC [Concomitant]

REACTIONS (5)
  - BLADDER DISORDER [None]
  - DIZZINESS [None]
  - DYSURIA [None]
  - OVERDOSE [None]
  - PARAESTHESIA [None]
